FAERS Safety Report 10577408 (Version 2)
Quarter: 2014Q4

REPORT INFORMATION
  Report Type: Spontaneous
  Country: US (occurrence: US)
  Receive Date: 20141111
  Receipt Date: 20141111
  Transmission Date: 20150529
  Serious: Yes (Other)
  Sender: FDA-Public Use
  Company Number: US-TEVA-506979USA

PATIENT
  Sex: Female

DRUGS (1)
  1. NYSTATIN. [Suspect]
     Active Substance: NYSTATIN
     Indication: PSORIASIS
     Route: 048

REACTIONS (3)
  - Nephrolithiasis [Unknown]
  - Urinary incontinence [Unknown]
  - Bladder disorder [Unknown]
